FAERS Safety Report 9764795 (Version 2)
Quarter: 2014Q1

REPORT INFORMATION
  Report Type: Spontaneous
  Country: US (occurrence: US)
  Receive Date: 20131217
  Receipt Date: 20140107
  Transmission Date: 20141002
  Serious: No
  Sender: FDA-Public Use
  Company Number: US-BIOGENIDEC-2013BI117212

PATIENT
  Age: 56 Year
  Sex: Female

DRUGS (7)
  1. TECFIDERA [Suspect]
     Indication: MULTIPLE SCLEROSIS
     Route: 048
     Dates: start: 201305
  2. EFFEXOR XR [Concomitant]
  3. PREMARIN [Concomitant]
  4. METOPROL TAR [Concomitant]
  5. CYCLOBENAPRINE [Concomitant]
  6. MORPHINE SULFATE [Concomitant]
  7. FLUCONAZOLE [Concomitant]

REACTIONS (3)
  - Fall [Recovered/Resolved]
  - Dysarthria [Not Recovered/Not Resolved]
  - Cognitive disorder [Not Recovered/Not Resolved]
